FAERS Safety Report 9853213 (Version 1)
Quarter: 2014Q1

REPORT INFORMATION
  Report Type: Spontaneous
  Country: FR (occurrence: FR)
  Receive Date: 20140129
  Receipt Date: 20140129
  Transmission Date: 20141002
  Serious: Yes (Other)
  Sender: FDA-Public Use
  Company Number: ALCN2014FR000792

PATIENT
  Age: 42 Year
  Sex: Female

DRUGS (2)
  1. MAXIDROL [Suspect]
     Dosage: 1 UNK, UNK
     Route: 047
     Dates: start: 20131105, end: 20131112
  2. ATROPINE SULFATE [Suspect]
     Dosage: 1 UNK, UNK
     Route: 047
     Dates: start: 20131105, end: 20131107

REACTIONS (1)
  - Vision blurred [Recovering/Resolving]
